FAERS Safety Report 12711794 (Version 2)
Quarter: 2016Q3

REPORT INFORMATION
  Report Type: Spontaneous
  Country: US (occurrence: US)
  Receive Date: 20160902
  Receipt Date: 20160902
  Transmission Date: 20161109
  Serious: No
  Sender: FDA-Public Use
  Company Number: US-AMARIN PHARMA, INC.-2016AMR000034

PATIENT
  Sex: Female

DRUGS (1)
  1. VASCEPA [Suspect]
     Active Substance: ICOSAPENT ETHYL
     Indication: PANCREATITIS
     Route: 048

REACTIONS (2)
  - Off label use [Unknown]
  - Eructation [Unknown]
